FAERS Safety Report 4896028-8 (Version None)
Quarter: 2005Q4

REPORT INFORMATION
  Report Type: 
  Country: None (occurrence: None)
  Receive Date: 20051228
  Receipt Date: 20041207
  Transmission Date: 20060501
  Serious: Yes (Hospitalization, Other)
  Sender: FDA-Public Use
  Company Number: US_980401318

PATIENT
  Age: 59 Year
  Sex: Male
  Weight: 93 kg

DRUGS (11)
  1. HUMALOG [Suspect]
     Indication: DIABETES MELLITUS INSULIN-DEPENDENT
     Dosage: 10 U/D DAY
     Dates: start: 19980101
  2. HUMULIN N [Suspect]
     Indication: DIABETES MELLITUS INSULIN-DEPENDENT
     Dosage: 30 U DAY
  3. ILETIN [Suspect]
     Indication: DIABETES MELLITUS
     Dates: start: 19530101, end: 19980101
  4. BETAPACE [Concomitant]
  5. SYNTHROID [Concomitant]
  6. LOTENSIN [Concomitant]
  7. PRAVACHOL [Concomitant]
  8. VITAMIN E [Concomitant]
  9. ASPIRIN [Concomitant]
  10. LANTUS [Concomitant]
  11. MULTI-VITAMIN [Concomitant]

REACTIONS (9)
  - BLOOD GLUCOSE DECREASED [None]
  - BLOOD GLUCOSE INCREASED [None]
  - DRUG INEFFECTIVE [None]
  - FALL [None]
  - HYPOGLYCAEMIA UNAWARENESS [None]
  - IMPAIRED HEALING [None]
  - LOWER LIMB FRACTURE [None]
  - OPEN WOUND [None]
  - SCAR [None]
